FAERS Safety Report 21140611 (Version 6)
Quarter: 2022Q4

REPORT INFORMATION
  Report Type: Spontaneous
  Country: CA (occurrence: CA)
  Receive Date: 20220728
  Receipt Date: 20221114
  Transmission Date: 20230113
  Serious: Yes (Hospitalization, Other)
  Sender: FDA-Public Use
  Company Number: CA-CELLTRION INC.-2021CA018397

PATIENT

DRUGS (8)
  1. INFLECTRA [Suspect]
     Active Substance: INFLIXIMAB-DYYB
     Indication: Polyarteritis nodosa
     Dosage: 5 MG/KG, EVERY 6 WEEKS, WEEKS 0,2,6 THEN EVERY 6 WEEKS
     Route: 042
     Dates: start: 20220308
  2. INFLECTRA [Suspect]
     Active Substance: INFLIXIMAB-DYYB
     Dosage: 5 MG/KG, WEEKS 0,2,6 THEN EVERY 6 WEEKS
     Route: 042
     Dates: start: 20220322, end: 20220322
  3. INFLECTRA [Suspect]
     Active Substance: INFLIXIMAB-DYYB
     Dosage: 5 MG/KG, EVERY 6 WEEKS
     Route: 042
     Dates: start: 20220614
  4. INFLECTRA [Suspect]
     Active Substance: INFLIXIMAB-DYYB
     Dosage: 5 MG/KG, WEEKS 0,2,6 THEN EVERY 6 WEEKS
     Route: 042
     Dates: start: 20220614
  5. INFLECTRA [Suspect]
     Active Substance: INFLIXIMAB-DYYB
     Dosage: 5 MG/KG, WEEKS 0,2,6 THEN EVERY 6 WEEKS
     Route: 042
     Dates: start: 20220614
  6. INFLECTRA [Suspect]
     Active Substance: INFLIXIMAB-DYYB
     Dosage: 220 MG, (PATIENT IS SUPPOSED TO RECEIVE 5 MG/KG)
     Route: 042
     Dates: start: 20220922
  7. INFLECTRA [Suspect]
     Active Substance: INFLIXIMAB-DYYB
     Dosage: 220 MG, (PATIENT IS SUPPOSED TO RECEIVE 5 MG/KG)
     Route: 042
     Dates: start: 20221103
  8. CORTISONE [Concomitant]
     Active Substance: CORTISONE
     Dosage: 15 MG, INCREASE CORTISONE DOSE TO 15MG FOR THE PAST WEEK

REACTIONS (11)
  - Colorectal cancer stage IV [Not Recovered/Not Resolved]
  - Tooth infection [Recovered/Resolved]
  - Off label use [Unknown]
  - Off label use [Unknown]
  - Off label use [Unknown]
  - Intentional product use issue [Unknown]
  - Inappropriate schedule of product administration [Unknown]
  - Incorrect dose administered [Unknown]
  - Skin ulcer [Not Recovered/Not Resolved]
  - Toothache [Recovering/Resolving]
  - Hyperaesthesia teeth [Not Recovered/Not Resolved]

NARRATIVE: CASE EVENT DATE: 20220101
